FAERS Safety Report 4653775-0 (Version None)
Quarter: 2005Q2

REPORT INFORMATION
  Report Type: 
  Country: None (occurrence: None)
  Receive Date: 20050504
  Receipt Date: 20050421
  Transmission Date: 20051028
  Serious: Yes (Other)
  Sender: FDA-Public Use
  Company Number: 2005064152

PATIENT
  Age: 66 Year
  Sex: Male
  Weight: 111.1313 kg

DRUGS (6)
  1. CELEBREX [Suspect]
     Indication: SPINAL OSTEOARTHRITIS
     Dosage: 400 MG (200 MG, 2 IN 1 D), ORAL
     Route: 048
     Dates: start: 19980101
  2. BEXTRA [Suspect]
     Indication: SPINAL OSTEOARTHRITIS
     Dosage: 10 MG (10 MG, 1 IN 1 D), ORAL
     Route: 048
     Dates: start: 20010101
  3. ACEYTLSALICYLIC ACID (ACETYLSALICYLIC ACID) [Concomitant]
  4. ACETAMINOPHEN [Concomitant]
  5. PROPACET 100 [Concomitant]
  6. IBUPROFEN [Concomitant]

REACTIONS (9)
  - ABDOMINAL PAIN UPPER [None]
  - ACNE [None]
  - COLITIS [None]
  - DISEASE RECURRENCE [None]
  - HEADACHE [None]
  - MYOCARDIAL INFARCTION [None]
  - PROCEDURAL COMPLICATION [None]
  - SURGERY [None]
  - WEIGHT INCREASED [None]
